FAERS Safety Report 5381792-4 (Version None)
Quarter: 2007Q2

REPORT INFORMATION
  Report Type: 
  Country: None (occurrence: None)
  Receive Date: 20070629
  Receipt Date: 20070208
  Transmission Date: 20071010
  Serious: Yes (Other)
  Sender: FDA-Public Use
  Company Number: US200702001840

PATIENT
  Age: 76 Year
  Sex: Female

DRUGS (1)
  1. HUMALOG [Suspect]
     Indication: DIABETES MELLITUS
     Dates: start: 20050801

REACTIONS (3)
  - BLOOD GLUCOSE INCREASED [None]
  - FATIGUE [None]
  - HEART VALVE REPLACEMENT [None]
